FAERS Safety Report 16942623 (Version 3)
Quarter: 2019Q4

REPORT INFORMATION
  Report Type: Spontaneous
  Country: JP (occurrence: JP)
  Receive Date: 20191021
  Receipt Date: 20191209
  Transmission Date: 20200122
  Serious: Yes (Other)
  Sender: FDA-Public Use
  Company Number: JP-009507513-1909JPN003604J

PATIENT
  Age: 85 Year
  Sex: Male

DRUGS (4)
  1. BELSOMRA [Suspect]
     Active Substance: SUVOREXANT
     Indication: INSOMNIA
     Dosage: 15 MILLIGRAM, PRN
     Route: 048
     Dates: start: 201907, end: 20190924
  2. NORVASC [Concomitant]
     Active Substance: AMLODIPINE BESYLATE
     Dosage: UNK
     Route: 065
  3. TSUMURA GOSHAJINKIGAN EXTRACT GRANULES FOR ETHICAL USE [Concomitant]
     Dosage: UNK
     Route: 065
  4. URIEF [Concomitant]
     Active Substance: SILODOSIN
     Dosage: UNK
     Route: 065

REACTIONS (5)
  - Loss of consciousness [Recovered/Resolved]
  - Abnormal dreams [Unknown]
  - Syncope [Recovered/Resolved]
  - Fall [Unknown]
  - Product use issue [Unknown]

NARRATIVE: CASE EVENT DATE: 20190924
